FAERS Safety Report 8006235-3 (Version None)
Quarter: 2011Q4

REPORT INFORMATION
  Report Type: 
  Country: None (occurrence: None)
  Receive Date: 20111226
  Receipt Date: 20111212
  Transmission Date: 20120403
  Serious: Yes (Other)
  Sender: FDA-Public Use
  Company Number: CA-ELI_LILLY_AND_COMPANY-CA201112003650

PATIENT
  Age: 70 Year
  Sex: Female

DRUGS (8)
  1. DOMPERIDONE [Concomitant]
  2. IRON [Concomitant]
     Dosage: UNK
  3. FLONASE [Concomitant]
  4. NEXIUM [Concomitant]
  5. FORTEO [Suspect]
     Indication: OSTEOPOROSIS
     Dosage: 20 UG, QD
     Route: 058
     Dates: start: 20101207
  6. MULTI-VITAMIN [Concomitant]
  7. GLUCOSAMINE [Concomitant]
  8. CALCIUM CARBONATE [Concomitant]

REACTIONS (1)
  - DEVICE FAILURE [None]
